FAERS Safety Report 18255938 (Version 1)
Quarter: 2020Q3

REPORT INFORMATION
  Report Type: Report from Study
  Country: None (occurrence: IL)
  Receive Date: 20200910
  Receipt Date: 20200910
  Transmission Date: 20201103
  Serious: Yes (Other)
  Sender: FDA-Public Use
  Company Number: IL-ABBVIE-18S-082-2590641-00

PATIENT
  Sex: Male

DRUGS (5)
  1. DUODOPA [Suspect]
     Active Substance: CARBIDOPA\LEVODOPA
     Dosage: CURRENT MORNING 3 ML, CONTINUOUS RATE 2.3 ML/HOUR, ED 0.3 ML
     Route: 050
     Dates: start: 20191027
  2. DUODOPA [Suspect]
     Active Substance: CARBIDOPA\LEVODOPA
     Indication: PARKINSON^S DISEASE
     Route: 050
     Dates: start: 20170914
  3. DUODOPA [Suspect]
     Active Substance: CARBIDOPA\LEVODOPA
     Dosage: CMD 3ML, CD 2.4ML/HOUR, CED 0.3ML
     Route: 050
     Dates: end: 20191027
  4. DUODOPA [Suspect]
     Active Substance: CARBIDOPA\LEVODOPA
     Dosage: MD 5ML, CD 2.4ML/HOUR, ED 0.3ML?DOSE DECREASED
     Route: 050
  5. DUODOPA [Suspect]
     Active Substance: CARBIDOPA\LEVODOPA
     Dosage: CURRENT: MORNING DOSE 3ML, CONTINUOUS DOSE 2.4ML/HOUR, EXTRA?DOSE 0.3ML
     Route: 050

REACTIONS (8)
  - Feeling abnormal [Not Recovered/Not Resolved]
  - Fatigue [Not Recovered/Not Resolved]
  - Dyskinesia [Unknown]
  - Cataract [Not Recovered/Not Resolved]
  - Restlessness [Not Recovered/Not Resolved]
  - Intentional product misuse [Unknown]
  - Myalgia [Unknown]
  - Device issue [Not Recovered/Not Resolved]

NARRATIVE: CASE EVENT DATE: 2019
